FAERS Safety Report 17457569 (Version 1)
Quarter: 2020Q1

REPORT INFORMATION
  Report Type: Spontaneous
  Country: CH (occurrence: CH)
  Receive Date: 20200225
  Receipt Date: 20200225
  Transmission Date: 20200409
  Serious: Yes (Death, Life-Threatening, Hospitalization)
  Sender: FDA-Public Use
  Company Number: CH-JNJFOC-20200201986

PATIENT
  Age: 22 Year
  Sex: Male
  Weight: 100 kg

DRUGS (3)
  1. NOVALGIN (METAMIZOLE SODIUM) [Suspect]
     Active Substance: METAMIZOLE SODIUM
     Indication: PAIN
     Dosage: 500 MG, UNK
     Route: 048
     Dates: start: 20190731
  2. NOVALGIN (METAMIZOLE SODIUM) [Suspect]
     Active Substance: METAMIZOLE SODIUM
     Dosage: 500 MG, UNK
     Route: 048
  3. RIVAROXABAN [Suspect]
     Active Substance: RIVAROXABAN
     Indication: MOBILITY DECREASED
     Dosage: 10 MG, UNK
     Route: 048

REACTIONS (2)
  - Agranulocytosis [Fatal]
  - Neutropenic colitis [Fatal]

NARRATIVE: CASE EVENT DATE: 20200103
